FAERS Safety Report 8457153-8 (Version None)
Quarter: 2012Q2

REPORT INFORMATION
  Report Type: 
  Country: None (occurrence: None)
  Receive Date: 20120614
  Receipt Date: 20120608
  Transmission Date: 20120825
  Serious: Yes (Other)
  Sender: FDA-Public Use
  Company Number: 217777

PATIENT
  Age: 61 Year
  Sex: Male
  Weight: 70 kg

DRUGS (1)
  1. INNOHEP [Suspect]
     Indication: VENA CAVA THROMBOSIS
     Dosage: 0.7 ML, SUBCUTANEOUS, 0.8 ML,SUBCUTANEOUS, STARTED 1- 5 MONTHS AGO
     Route: 058

REACTIONS (3)
  - DRUG INEFFECTIVE FOR UNAPPROVED INDICATION [None]
  - MEDICATION ERROR [None]
  - INAPPROPRIATE SCHEDULE OF DRUG ADMINISTRATION [None]
